FAERS Safety Report 15906305 (Version 2)
Quarter: 2019Q2

REPORT INFORMATION
  Report Type: Report from Study
  Country: US (occurrence: US)
  Receive Date: 20190204
  Receipt Date: 20190626
  Transmission Date: 20190711
  Serious: Yes (Other)
  Sender: FDA-Public Use
  Company Number: US-SAKK-2019SA023158AA

PATIENT
  Age: 59 Year
  Sex: Male

DRUGS (1)
  1. ENOXAPARIN SODIUM. [Suspect]
     Active Substance: ENOXAPARIN SODIUM
     Dosage: UNK, UNK

REACTIONS (1)
  - Neoplasm malignant [Not Recovered/Not Resolved]
